FAERS Safety Report 19951172 (Version 1)
Quarter: 2021Q4

REPORT INFORMATION
  Report Type: Spontaneous
  Country: US (occurrence: US)
  Receive Date: 20211013
  Receipt Date: 20211013
  Transmission Date: 20220303
  Serious: No
  Sender: FDA-Public Use
  Company Number: US-VERTEX PHARMACEUTICALS-2021-015767

PATIENT
  Age: 6 Year
  Sex: Female

DRUGS (5)
  1. TRIKAFTA [Suspect]
     Active Substance: ELEXACAFTOR\IVACAFTOR\TEZACAFTOR
     Indication: Cystic fibrosis
     Dosage: UNK
     Route: 048
     Dates: start: 20210910, end: 20210925
  2. ALBUTEROL [Concomitant]
     Active Substance: ALBUTEROL
  3. SALINE [BORIC ACID] [Concomitant]
  4. CLARITIN [Concomitant]
     Active Substance: LORATADINE
  5. KITABIS PAK [Concomitant]
     Active Substance: TOBRAMYCIN

REACTIONS (2)
  - Rash [Recovering/Resolving]
  - Hand-foot-and-mouth disease [Unknown]

NARRATIVE: CASE EVENT DATE: 20210924
